FAERS Safety Report 9202685 (Version 2)
Quarter: 2013Q2

REPORT INFORMATION
  Report Type: Spontaneous
  Country: FR (occurrence: FR)
  Receive Date: 20130401
  Receipt Date: 20130401
  Transmission Date: 20140414
  Serious: Yes (Life-Threatening, Hospitalization, Other)
  Sender: FDA-Public Use
  Company Number: FR-PFIZER INC-HQWYE876213MAY04

PATIENT
  Age: 18 Month
  Sex: Male

DRUGS (10)
  1. CHILDREN^S ADVIL [Suspect]
     Indication: PYREXIA
     Dosage: UNK
     Route: 048
     Dates: start: 20040214, end: 20040216
  2. TIXOCORTOL PIVALATE [Suspect]
     Indication: COUGH
     Dosage: UNK
     Route: 045
     Dates: start: 20040212, end: 20040214
  3. BACITRACIN [Suspect]
     Dosage: UNK
     Route: 048
     Dates: start: 20040212, end: 20040214
  4. PRIMPERAN [Suspect]
     Dosage: UNK
     Route: 048
     Dates: start: 20040214, end: 20040216
  5. ORELOX [Suspect]
     Dosage: UNK
     Route: 048
     Dates: start: 20040216, end: 20040216
  6. NIFUROXAZIDE [Suspect]
     Dosage: UNKNOWN
     Route: 048
     Dates: start: 20040214, end: 20040216
  7. AMYLASE [Suspect]
     Route: 048
  8. DOMPERIDONE [Concomitant]
     Route: 065
  9. SMECTA /OLD FORM/ [Concomitant]
     Route: 048
  10. EFFERALGAN [Concomitant]
     Dosage: UNK
     Route: 048
     Dates: start: 20040214

REACTIONS (17)
  - Haemolytic anaemia [Recovered/Resolved]
  - Renal failure acute [Recovered/Resolved]
  - Renal tubular necrosis [Recovered/Resolved]
  - Gastroenteritis [Unknown]
  - Otitis media [Unknown]
  - Oxygen saturation decreased [Recovered/Resolved]
  - Mycoplasma infection [Recovered/Resolved]
  - Hepato-lenticular degeneration [Unknown]
  - Spherocytic anaemia [Unknown]
  - Autoimmune disorder [Unknown]
  - Dehydration [Unknown]
  - Cardiomegaly [Unknown]
  - Kidney enlargement [Unknown]
  - Chest X-ray abnormal [Unknown]
  - Leukocytosis [Recovered/Resolved]
  - General physical health deterioration [Recovered/Resolved]
  - Serology positive [Unknown]
